FAERS Safety Report 9619306 (Version 3)
Quarter: 2013Q4

REPORT INFORMATION
  Report Type: Spontaneous
  Country: CA (occurrence: CA)
  Receive Date: 20131014
  Receipt Date: 20131219
  Transmission Date: 20140711
  Serious: Yes (Death, Hospitalization, Other)
  Sender: FDA-Public Use
  Company Number: CA-PFIZER INC-2013289100

PATIENT
  Age: 39 Year
  Sex: Female

DRUGS (1)
  1. SUTENT [Suspect]
     Indication: ANGIOSARCOMA METASTATIC
     Dosage: 1 PILL PER DAY
     Dates: start: 20120821

REACTIONS (6)
  - Disease progression [Fatal]
  - Angiosarcoma metastatic [Fatal]
  - Vomiting [Unknown]
  - Soft tissue necrosis [Unknown]
  - Subcutaneous abscess [Unknown]
  - Pain [Unknown]
